FAERS Safety Report 7223057-1 (Version None)
Quarter: 2011Q1

REPORT INFORMATION
  Report Type: 
  Country: None (occurrence: None)
  Receive Date: 20110112
  Receipt Date: 20110108
  Transmission Date: 20110831
  Serious: Yes (Hospitalization)
  Sender: FDA-Public Use
  Company Number: JP-MERCK-1101USA00650

PATIENT
  Age: 53 Year
  Sex: Female

DRUGS (3)
  1. DECADRON [Suspect]
     Route: 048
     Dates: start: 20091101, end: 20091101
  2. RINDERON (BETAMETHASONE) [Concomitant]
     Route: 048
  3. PREDONINE [Concomitant]
     Route: 048

REACTIONS (1)
  - PSYCHOTIC DISORDER [None]
